FAERS Safety Report 7547290-4 (Version None)
Quarter: 2011Q2

REPORT INFORMATION
  Report Type: 
  Country: None (occurrence: None)
  Receive Date: 20110614
  Receipt Date: 20110603
  Transmission Date: 20111010
  Serious: Yes (Other)
  Sender: FDA-Public Use
  Company Number: US-JNJFOC-20110409446

PATIENT
  Sex: Male
  Weight: 113.4 kg

DRUGS (4)
  1. PRILOSEC [Concomitant]
     Indication: GASTROOESOPHAGEAL REFLUX DISEASE
  2. STELARA [Suspect]
     Route: 058
     Dates: start: 20110401, end: 20110401
  3. INDOMETHACIN [Concomitant]
     Indication: HYPERTENSION
  4. STELARA [Suspect]
     Indication: PSORIASIS
     Route: 058
     Dates: start: 20110330

REACTIONS (2)
  - DRUG INEFFECTIVE [None]
  - VASCULITIS [None]
